FAERS Safety Report 7241057-2 (Version None)
Quarter: 2011Q1

REPORT INFORMATION
  Report Type: 
  Country: None (occurrence: None)
  Receive Date: 20110124
  Receipt Date: 20110113
  Transmission Date: 20110831
  Serious: Yes (Hospitalization, Other)
  Sender: FDA-Public Use
  Company Number: FR-ACTELION-A-CH2010-39684

PATIENT
  Sex: Female
  Weight: 80 kg

DRUGS (2)
  1. MIGLUSTAT CAPSULE 100 MG EU [Suspect]
     Indication: GAUCHER'S DISEASE
     Dosage: 100 MG, TID
     Route: 048
     Dates: end: 20101004
  2. MIGLUSTAT CAPSULE 100 MG EU [Suspect]
     Dosage: 100 MG, OD
     Route: 048
     Dates: start: 20091005

REACTIONS (4)
  - OSTEONECROSIS [None]
  - CHITOTRIOSIDASE INCREASED [None]
  - HIP ARTHROPLASTY [None]
  - CONCOMITANT DISEASE AGGRAVATED [None]
